FAERS Safety Report 17221364 (Version 2)
Quarter: 2020Q2

REPORT INFORMATION
  Report Type: Spontaneous
  Country: ES (occurrence: ES)
  Receive Date: 20200101
  Receipt Date: 20200526
  Transmission Date: 20200713
  Serious: Yes (Life-Threatening, Hospitalization, Other)
  Sender: FDA-Public Use
  Company Number: ES-AMGEN-ESPSP2019216237

PATIENT
  Age: 34 Year
  Sex: Female
  Weight: 60 kg

DRUGS (12)
  1. OMEPRAZOLE. [Suspect]
     Active Substance: OMEPRAZOLE
     Indication: PROPHYLAXIS
     Dosage: 20 MILLIGRAM (14 CAPSULES)
     Route: 065
     Dates: start: 20190214
  2. PARACETAMOL [Suspect]
     Active Substance: ACETAMINOPHEN
     Dosage: 1 GRAM
     Route: 042
     Dates: start: 20190217
  3. OXIDO NITROSO [Suspect]
     Active Substance: NITRIC OXIDE
     Indication: ANAESTHESIA
     Dosage: UNK (1 GAS BULLET OF 4.55L)
     Route: 055
     Dates: start: 20190215, end: 20190215
  4. LORAZEPAM. [Suspect]
     Active Substance: LORAZEPAM
     Indication: PRODUCT USED FOR UNKNOWN INDICATION
     Dosage: 1 MILLIGRAM (25 TABLETS)
     Route: 065
     Dates: start: 20190214
  5. PARACETAMOL [Suspect]
     Active Substance: ACETAMINOPHEN
     Indication: ANALGESIC THERAPY
     Dosage: 1 GRAM, Q8H (20 TABLETS BLISTER)
     Route: 042
     Dates: start: 20190214, end: 20190216
  6. MEROPENEM. [Suspect]
     Active Substance: MEROPENEM
     Indication: PRODUCT USED FOR UNKNOWN INDICATION
     Dosage: UNK
     Route: 042
     Dates: start: 20190224
  7. AMOXICILLIN/CLAVULANIC ACID [Suspect]
     Active Substance: AMOXICILLIN\CLAVULANIC ACID
     Indication: PRODUCT USED FOR UNKNOWN INDICATION
     Dosage: 1 DOSAGE FORM
     Route: 065
     Dates: start: 20190214
  8. METAMIZOLE [Suspect]
     Active Substance: METAMIZOLE
     Indication: ANALGESIC THERAPY
  9. RANITIDINE. [Suspect]
     Active Substance: RANITIDINE
     Indication: PROPHYLAXIS
     Dosage: 50 MILLIGRAM
     Route: 042
     Dates: start: 20190214
  10. METAMIZOLE [Suspect]
     Active Substance: METAMIZOLE
     Indication: POSTOPERATIVE ANALGESIA
     Dosage: 8 GRAM (IN 506 ML TO 21.08 ML/H))
     Route: 042
     Dates: start: 20190214, end: 20190216
  11. FILGRASTIM [Suspect]
     Active Substance: FILGRASTIM
     Indication: PRODUCT USED FOR UNKNOWN INDICATION
     Dosage: UNK
     Route: 065
     Dates: start: 20190224
  12. METOCLOPRAMIDE. [Suspect]
     Active Substance: METOCLOPRAMIDE
     Indication: POSTOPERATIVE ANALGESIA
     Dosage: 30 MILLIGRAM (IN 506 ML TO 21.08 ML/H)
     Route: 042

REACTIONS (3)
  - Febrile neutropenia [Unknown]
  - Agranulocytosis [Unknown]
  - Anaemia megaloblastic [Unknown]

NARRATIVE: CASE EVENT DATE: 20190224
